FAERS Safety Report 14185774 (Version 1)
Quarter: 2017Q4

REPORT INFORMATION
  Report Type: Spontaneous
  Country: AU (occurrence: AU)
  Receive Date: 20171114
  Receipt Date: 20171114
  Transmission Date: 20180321
  Serious: Yes (Other)
  Sender: FDA-Public Use
  Company Number: AU-ABBVIE-17K-008-2158447-00

PATIENT
  Sex: Male

DRUGS (3)
  1. PREDNISONE. [Concomitant]
     Active Substance: PREDNISONE
     Indication: PRODUCT USED FOR UNKNOWN INDICATION
  2. ADALIMUMAB [Suspect]
     Active Substance: ADALIMUMAB
     Indication: PSORIATIC ARTHROPATHY
     Route: 058
  3. ENBREL [Suspect]
     Active Substance: ETANERCEPT
     Indication: PRODUCT USED FOR UNKNOWN INDICATION
     Route: 058

REACTIONS (15)
  - Hepatic steato-fibrosis [Unknown]
  - Renal colic [Unknown]
  - Intracranial aneurysm [Unknown]
  - Uveitis [Unknown]
  - Lumbar radiculopathy [Unknown]
  - Portal hypertension [Unknown]
  - Type 2 diabetes mellitus [Unknown]
  - Swelling [Unknown]
  - Drug ineffective [Unknown]
  - Hepatic cirrhosis [Unknown]
  - Seizure [Unknown]
  - Pain [Unknown]
  - Peptic ulcer [Unknown]
  - Body mass index increased [Unknown]
  - Therapeutic response shortened [Unknown]

NARRATIVE: CASE EVENT DATE: 2012
